FAERS Safety Report 10268582 (Version 2)
Quarter: 2014Q3

REPORT INFORMATION
  Report Type: Spontaneous
  Country: US (occurrence: None)
  Receive Date: 20140625
  Receipt Date: 20140801
  Transmission Date: 20150326
  Serious: Yes (Hospitalization)
  Sender: FDA-Public Use
  Company Number: HA14-228-AE

PATIENT
  Age: 61 Year
  Sex: Male

DRUGS (11)
  1. XANAX [Concomitant]
     Active Substance: ALPRAZOLAM
  2. GABAPENTIN. [Suspect]
     Active Substance: GABAPENTIN
     Indication: NERVE INJURY
     Route: 048
     Dates: start: 20140424
  3. AMBIEN [Concomitant]
     Active Substance: ZOLPIDEM TARTRATE
  4. PLAVIX [Concomitant]
     Active Substance: CLOPIDOGREL BISULFATE
  5. OMEPRAZOLE. [Concomitant]
     Active Substance: OMEPRAZOLE
  6. COUMADIN [Concomitant]
     Active Substance: WARFARIN SODIUM
  7. HYDROMORPHONE [Concomitant]
     Active Substance: HYDROMORPHONE
  8. ECOTRIN ASPIRIN [Concomitant]
  9. METOPROLOL TARTRATE. [Concomitant]
     Active Substance: METOPROLOL TARTRATE
  10. GABAPENTIN. [Concomitant]
     Active Substance: GABAPENTIN
     Indication: NERVE INJURY
     Dosage: 1 CAPSULE TID, ORAL
     Route: 048
     Dates: start: 201406
  11. CITALOPRAM / CELEXA [Concomitant]

REACTIONS (14)
  - Blood pressure increased [None]
  - Lethargy [None]
  - Chest pain [None]
  - Movement disorder [None]
  - Chest discomfort [None]
  - Dyspnoea [None]
  - Hypoaesthesia [None]
  - Headache [None]
  - Depression [None]
  - Pain [None]
  - Pain in jaw [None]
  - Paraesthesia [None]
  - Hypersomnia [None]
  - Cardiac disorder [None]

NARRATIVE: CASE EVENT DATE: 20140523
